FAERS Safety Report 5465707-6 (Version None)
Quarter: 2007Q3

REPORT INFORMATION
  Report Type: 
  Country: None (occurrence: None)
  Receive Date: 20070919
  Receipt Date: 20070919
  Transmission Date: 20080115
  Serious: Yes (Other)
  Sender: FDA-Public Use
  Company Number: None

PATIENT
  Age: 69 Year
  Sex: Male

DRUGS (1)
  1. METFORMIN HCL ER TABS 571; 500MG [Suspect]
     Indication: TYPE 2 DIABETES MELLITUS
     Dosage: TAKE 4 TABLETS EVERY EVENING
     Dates: start: 20040101

REACTIONS (2)
  - BLOOD GLUCOSE INCREASED [None]
  - PHARMACEUTICAL PRODUCT COMPLAINT [None]
